FAERS Safety Report 6242214-4 (Version None)
Quarter: 2009Q2

REPORT INFORMATION
  Report Type: 
  Country: None (occurrence: None)
  Receive Date: 20090624
  Receipt Date: 20090612
  Transmission Date: 20091009
  Serious: No
  Sender: FDA-Public Use
  Company Number: US-SOLVAY-00209003236

PATIENT
  Age: 56 Year
  Sex: Female
  Weight: 81.818 kg

DRUGS (3)
  1. FLEXERIL [Concomitant]
     Indication: BACK PAIN
     Dosage: DAILY DOSE:  UNKNOWN, FREQUENCY: AS NEEDED.
     Route: 048
  2. ANDROGEL [Suspect]
     Indication: ACCIDENTAL EXPOSURE
     Dosage: DAILY DOSE: 10 GRAM(S), VIA PUMP
     Route: 062
     Dates: start: 20070101, end: 20080101
  3. TYLENOL W/ CODEINE [Concomitant]
     Indication: BACK PAIN
     Dosage: DAILY DOSE:  UNKNOWN, FREQUENCY: AS NEEDED
     Route: 048

REACTIONS (1)
  - HIRSUTISM [None]
